FAERS Safety Report 8429498-9 (Version None)
Quarter: 2012Q2

REPORT INFORMATION
  Report Type: 
  Country: None (occurrence: None)
  Receive Date: 20120612
  Receipt Date: 20120612
  Transmission Date: 20120825
  Serious: Yes (Death)
  Sender: FDA-Public Use
  Company Number: US-PFIZER INC-2011US-42188

PATIENT
  Age: 38 Year
  Sex: Male

DRUGS (15)
  1. DICHLORALPHENAZONE/ISOMETHEPTENE/PARACETAMOL [Suspect]
     Route: 048
  2. PHENYTOIN [Suspect]
     Route: 048
  3. BENZODIAZEPINE DERIVATIVES [Suspect]
     Route: 048
  4. PROCHLORPERAZINE [Suspect]
     Route: 048
  5. VERAPAMIL HCL [Suspect]
     Dosage: UNK
     Route: 048
  6. PAROXETINE [Suspect]
     Route: 048
  7. ZOLPIDEM TARTRATE [Suspect]
     Dosage: UNK
     Route: 048
  8. METHERGINE [Suspect]
     Dosage: UNK
     Route: 048
  9. CITALOPRAM [Suspect]
     Dosage: UNK
     Route: 065
  10. VALPROIC ACID [Suspect]
     Route: 048
  11. QUETIAPINE [Suspect]
     Dosage: UNK
     Route: 048
  12. ESZOPICLONE [Suspect]
     Dosage: UNK
     Route: 048
  13. CYCLOBENZAPRINE HCL [Suspect]
     Dosage: UNK
     Route: 048
  14. ACETAMINOPHEN [Suspect]
     Route: 048
  15. MIDAZOLAM HCL [Suspect]
     Route: 048

REACTIONS (1)
  - COMPLETED SUICIDE [None]
